FAERS Safety Report 25595293 (Version 2)
Quarter: 2025Q3

REPORT INFORMATION
  Report Type: Report from Study
  Country: KR (occurrence: KR)
  Receive Date: 20250723
  Receipt Date: 20250822
  Transmission Date: 20251020
  Serious: Yes (Hospitalization, Other)
  Sender: AUROBINDO
  Company Number: KR-AUROBINDO-AUR-APL-2025-036276

PATIENT
  Age: 57 Year
  Sex: Male
  Weight: 70.3 kg

DRUGS (43)
  1. PRALATREXATE [Suspect]
     Active Substance: PRALATREXATE
     Indication: Angioimmunoblastic T-cell lymphoma
     Route: 042
     Dates: start: 20250616, end: 20250616
  2. PRALATREXATE [Suspect]
     Active Substance: PRALATREXATE
     Route: 042
     Dates: start: 20250623, end: 20250623
  3. PRALATREXATE [Suspect]
     Active Substance: PRALATREXATE
     Route: 042
     Dates: start: 20250708, end: 20250708
  4. PRALATREXATE [Suspect]
     Active Substance: PRALATREXATE
     Route: 042
     Dates: start: 20250715, end: 20250715
  5. PRALATREXATE [Suspect]
     Active Substance: PRALATREXATE
     Route: 042
     Dates: start: 20250729, end: 20250729
  6. PRALATREXATE [Suspect]
     Active Substance: PRALATREXATE
     Route: 042
     Dates: start: 20250805, end: 20250805
  7. CYCLOPHOSPHAMIDE [Suspect]
     Active Substance: CYCLOPHOSPHAMIDE
     Indication: Angioimmunoblastic T-cell lymphoma
     Route: 042
     Dates: start: 20250616, end: 20250616
  8. CYCLOPHOSPHAMIDE [Suspect]
     Active Substance: CYCLOPHOSPHAMIDE
     Route: 042
     Dates: start: 20250708, end: 20250708
  9. CYCLOPHOSPHAMIDE [Suspect]
     Active Substance: CYCLOPHOSPHAMIDE
     Route: 042
     Dates: start: 20250729, end: 20250729
  10. ONCOVIN [Suspect]
     Active Substance: VINCRISTINE SULFATE
     Indication: Angioimmunoblastic T-cell lymphoma
     Route: 042
  11. PREDNISONE [Suspect]
     Active Substance: PREDNISONE
     Indication: Angioimmunoblastic T-cell lymphoma
     Route: 048
     Dates: start: 20250616
  12. PREDNISONE [Suspect]
     Active Substance: PREDNISONE
     Route: 048
     Dates: start: 20250620
  13. PREDNISONE [Suspect]
     Active Substance: PREDNISONE
     Route: 048
     Dates: start: 20250708
  14. PREDNISONE [Suspect]
     Active Substance: PREDNISONE
     Route: 048
     Dates: start: 20250729
  15. METHIMAZOLE [Concomitant]
     Active Substance: METHIMAZOLE
     Indication: Hyperthyroidism
     Dosage: 5 MILLIGRAM, ONCE A DAY
     Route: 048
     Dates: start: 2015
  16. ATORVASTATIN [Concomitant]
     Active Substance: ATORVASTATIN
     Indication: Hyperlipidaemia
     Dosage: 10 MILLIGRAM, ONCE A DAY
     Route: 048
     Dates: start: 202411
  17. FOLIC ACID [Concomitant]
     Active Substance: FOLIC ACID
     Indication: Product used for unknown indication
     Dosage: 1 MILLIGRAM, ONCE A DAY
     Route: 048
     Dates: start: 20250605
  18. CYANOCOBALAMIN [Concomitant]
     Active Substance: CYANOCOBALAMIN
     Indication: Product used for unknown indication
     Dosage: 1 MILLIGRAM, ONCE A DAY
     Route: 030
     Dates: start: 20250605, end: 20250605
  19. PREDNISOLONE [Concomitant]
     Active Substance: PREDNISOLONE
     Indication: Lymphoma
     Dosage: 50 MILLIGRAM, TWO TIMES A DAY
     Route: 048
     Dates: start: 20250605, end: 20250610
  20. FAMOTIDINE [Concomitant]
     Active Substance: FAMOTIDINE
     Indication: Prophylaxis
     Dosage: 20 MILLIGRAM, TWO TIMES A DAY
     Route: 048
     Dates: start: 20250605, end: 20250610
  21. FAMOTIDINE [Concomitant]
     Active Substance: FAMOTIDINE
     Dosage: 20 MILLIGRAM, TWO TIMES A DAY
     Route: 048
     Dates: start: 20250703, end: 20250705
  22. Akynzeo [Concomitant]
     Indication: Prophylaxis
     Dosage: 1 DOSAGE FORM, ONCE A DAY
     Route: 048
     Dates: start: 20250616, end: 20250616
  23. Akynzeo [Concomitant]
     Dosage: 1 DOSAGE FORM, ONCE A DAY
     Route: 048
     Dates: start: 20250708, end: 20250708
  24. Akynzeo [Concomitant]
     Dosage: 1 DOSAGE FORM, ONCE A DAY
     Route: 048
     Dates: start: 20250729, end: 20250729
  25. GASTER [Concomitant]
     Active Substance: FAMOTIDINE
     Indication: Prophylaxis
     Dosage: 20 MILLIGRAM, ONCE A DAY
     Route: 042
     Dates: start: 20250616, end: 20250616
  26. GASTER [Concomitant]
     Active Substance: FAMOTIDINE
     Dosage: 20 MILLIGRAM, ONCE A DAY
     Route: 048
     Dates: start: 20250620
  27. GASTER [Concomitant]
     Active Substance: FAMOTIDINE
     Dosage: 20 MILLIGRAM, ONCE A DAY
     Route: 048
     Dates: start: 20250708, end: 20250712
  28. GASTER [Concomitant]
     Active Substance: FAMOTIDINE
     Dosage: 20 MILLIGRAM, ONCE A DAY
     Route: 048
     Dates: start: 20250729, end: 20250729
  29. GASTER [Concomitant]
     Active Substance: FAMOTIDINE
     Dosage: 20 MILLIGRAM, ONCE A DAY
     Route: 048
     Dates: start: 20250702, end: 20250730
  30. Neulapeg [Concomitant]
     Indication: Neutropenia
     Route: 065
  31. Neulapeg [Concomitant]
     Route: 065
     Dates: start: 20250624, end: 20250624
  32. Neulapeg [Concomitant]
     Dosage: 6 MILLIGRAM, ONCE A DAY
     Route: 058
     Dates: start: 20250716, end: 20250716
  33. Kamistad [Concomitant]
     Indication: Product used for unknown indication
     Dosage: 10 GRAM, 3 TIMES A DAY
     Route: 061
     Dates: start: 20250623
  34. SODIUM BICARBONATE [Concomitant]
     Active Substance: SODIUM BICARBONATE
     Indication: Product used for unknown indication
     Route: 065
     Dates: start: 20250623
  35. PROPACETAMOL HYDROCHLORIDE [Concomitant]
     Active Substance: PROPACETAMOL HYDROCHLORIDE
     Indication: Product used for unknown indication
     Route: 042
     Dates: start: 20250630, end: 20250630
  36. Ketocin [Concomitant]
     Indication: Product used for unknown indication
     Route: 042
     Dates: start: 20250630, end: 20250630
  37. CEFTRIAXONE [Concomitant]
     Active Substance: CEFTRIAXONE
     Indication: Product used for unknown indication
     Dosage: 2 GRAM, ONCE A DAY
     Route: 042
     Dates: start: 20250630, end: 20250703
  38. SODIUM CHLORIDE [Concomitant]
     Active Substance: SODIUM CHLORIDE
     Indication: Product used for unknown indication
     Route: 042
     Dates: start: 20250630, end: 20250630
  39. AMINO ACIDS\DEXTROSE\ELECTROLYTES NOS\SOYBEAN OIL\VITAMINS [Concomitant]
     Active Substance: AMINO ACIDS\DEXTROSE\ELECTROLYTES NOS\SOYBEAN OIL\VITAMINS
     Indication: Product used for unknown indication
     Route: 042
     Dates: start: 20250701, end: 20250701
  40. Hartman [Concomitant]
     Indication: Product used for unknown indication
     Route: 042
     Dates: start: 20250701, end: 20250701
  41. TAGAMET [Concomitant]
     Active Substance: CIMETIDINE
     Indication: Dyspepsia
     Dosage: 2 MILLILITER, 3 TIMES A DAY
     Route: 042
     Dates: start: 20250701, end: 20250703
  42. CEFACLOR [Concomitant]
     Active Substance: CEFACLOR
     Indication: Infection
     Dosage: 250 MILLIGRAM, 3 TIMES A DAY
     Route: 048
     Dates: start: 20250703, end: 20250705
  43. Dulackhan [Concomitant]
     Indication: Product used for unknown indication
     Route: 048
     Dates: start: 20250715

REACTIONS (6)
  - Enterocolitis infectious [Recovered/Resolved]
  - Stomatitis [Not Recovered/Not Resolved]
  - Peripheral sensory neuropathy [Not Recovered/Not Resolved]
  - Chest discomfort [Recovered/Resolved]
  - Constipation [Not Recovered/Not Resolved]
  - Rash [Recovered/Resolved]

NARRATIVE: CASE EVENT DATE: 20250616
